FAERS Safety Report 14798458 (Version 3)
Quarter: 2018Q3

REPORT INFORMATION
  Report Type: Spontaneous
  Country: US (occurrence: US)
  Receive Date: 20180424
  Receipt Date: 20180719
  Transmission Date: 20181010
  Serious: Yes (Other)
  Sender: FDA-Public Use
  Company Number: US-PFIZER INC-2018166476

PATIENT
  Age: 43 Year
  Sex: Female

DRUGS (1)
  1. XELJANZ XR [Suspect]
     Active Substance: TOFACITINIB CITRATE
     Dosage: 11 MG, UNK
     Dates: start: 201803, end: 2018

REACTIONS (8)
  - Campylobacter infection [Unknown]
  - Food allergy [Unknown]
  - Painful respiration [Unknown]
  - Pain [Unknown]
  - Fatigue [Unknown]
  - Cough [Unknown]
  - Anaphylactic reaction [Unknown]
  - Malaise [Unknown]

NARRATIVE: CASE EVENT DATE: 2018
